FAERS Safety Report 11198510 (Version 2)
Quarter: 2015Q3

REPORT INFORMATION
  Report Type: Spontaneous
  Country: FR (occurrence: FR)
  Receive Date: 20150618
  Receipt Date: 20150820
  Transmission Date: 20151125
  Serious: Yes (Hospitalization)
  Sender: FDA-Public Use
  Company Number: FR-009507513-1506FRA006659

PATIENT
  Age: 36 Year
  Sex: Female

DRUGS (6)
  1. PROGLICEM [Suspect]
     Active Substance: DIAZOXIDE
     Dosage: 550 MG, QD
     Route: 048
     Dates: start: 201505, end: 2015
  2. THERALENE [Suspect]
     Active Substance: TRIMEPRAZINE
     Dosage: 10 DROPS IN THE EVENING(AT BEDTIME) IF NEEDED
     Route: 048
  3. LEXOMIL [Suspect]
     Active Substance: BROMAZEPAM
     Indication: ANXIETY
     Dosage: 3 MG, IF NEEDED AT BEDTIME
     Dates: start: 2015
  4. SEROPLEX [Suspect]
     Active Substance: ESCITALOPRAM OXALATE
     Dosage: UNK
     Route: 048
     Dates: start: 2015
  5. PROGLICEM [Suspect]
     Active Substance: DIAZOXIDE
     Indication: INSULINOMA
     Dosage: 175 MG, QD
     Route: 048
     Dates: start: 20150507, end: 201505
  6. ACETAMINOPHEN. [Suspect]
     Active Substance: ACETAMINOPHEN
     Dosage: UNK, FREQUENCY REPORTED AS ^IF PAIN^
     Route: 048

REACTIONS (2)
  - Rash erythematous [Recovering/Resolving]
  - Photosensitivity reaction [Recovering/Resolving]

NARRATIVE: CASE EVENT DATE: 20150528
